FAERS Safety Report 13638492 (Version 1)
Quarter: 2017Q2

REPORT INFORMATION
  Report Type: Spontaneous
  Country: US (occurrence: US)
  Receive Date: 20170609
  Receipt Date: 20170609
  Transmission Date: 20170830
  Serious: No
  Sender: FDA-Public Use
  Company Number: US-DRREDDYS-USA/USA/17/0087997

PATIENT
  Age: 70 Year
  Sex: Female
  Weight: 56.6 kg

DRUGS (2)
  1. FEXOFENADINE HCL [Suspect]
     Active Substance: FEXOFENADINE HYDROCHLORIDE
     Indication: FOOD ALLERGY
  2. FEXOFENADINE HCL [Suspect]
     Active Substance: FEXOFENADINE HYDROCHLORIDE
     Indication: SINUS CONGESTION
     Route: 048

REACTIONS (4)
  - Thirst [Recovered/Resolved]
  - Dry mouth [Recovered/Resolved]
  - Poor quality sleep [Recovered/Resolved]
  - Product quality issue [Unknown]
